FAERS Safety Report 12720888 (Version 1)
Quarter: 2016Q3

REPORT INFORMATION
  Report Type: Other
  Country: US (occurrence: US)
  Receive Date: 20160907
  Receipt Date: 20160907
  Transmission Date: 20161109
  Serious: No
  Sender: FDA-Public Use
  Company Number: US-COL_21014_2015

PATIENT
  Sex: Male

DRUGS (1)
  1. COLGATE TOTAL WHITENING [Suspect]
     Active Substance: SODIUM FLUORIDE\TRICLOSAN
     Indication: BREATH ODOUR
     Dosage: NI/ NI/
     Route: 048

REACTIONS (2)
  - Drug ineffective [Unknown]
  - Breath odour [Unknown]
